FAERS Safety Report 9735716 (Version 2)
Quarter: 2013Q4

REPORT INFORMATION
  Report Type: Spontaneous
  Country: US (occurrence: None)
  Receive Date: 20131204
  Receipt Date: 20131213
  Transmission Date: 20140711
  Serious: Yes (Hospitalization)
  Sender: FDA-Public Use
  Company Number: 2013-003767

PATIENT
  Age: 58 Year
  Sex: Female

DRUGS (15)
  1. ESTRACE [Suspect]
     Indication: VULVOVAGINAL DRYNESS
     Dosage: 1 G DAILY FOR TWO WEEKS, VAGINAL
     Route: 067
     Dates: start: 20131119
  2. ESTRACE [Suspect]
     Indication: VAGINAL HAEMORRHAGE
     Dosage: 1 G DAILY FOR TWO WEEKS, VAGINAL
     Route: 067
     Dates: start: 20131119
  3. MICARDIS (TELMISARTAN) [Concomitant]
  4. TEKTURNA (ALISKIREN FUMARATE) [Concomitant]
  5. METOPROLOL (METOPROLOL) [Concomitant]
  6. CLONIDINE (CLONIDINE) [Concomitant]
  7. LANTUS (INSULIN GLARRINE) [Concomitant]
  8. NOVOLOG (INSULIN ASPART) [Concomitant]
  9. PANTOPRAZOLE (PANTOPRAZOLE) [Concomitant]
  10. MONTELUKAST SODIUM (MONTELUKAST SODIUM) [Concomitant]
  11. SPIRIVA (TOTROPIUM BROMIDE) [Concomitant]
  12. XANAX (ALPRAZOLAM) [Concomitant]
  13. PERCOCET /00446701 (OXYCODONE HYDROCHLORIDE, OXYCODONE TEREPHTHALATE, PARACETAMOL) [Concomitant]
  14. KLOR-CON (POTASSIUM CHLORIDE) [Concomitant]
  15. LASIX /00032601/ (FUROSEMIDE) UNK, UNKUNK [Concomitant]

REACTIONS (5)
  - Hospitalisation [None]
  - Supraventricular tachycardia [None]
  - Pulmonary hypertension [None]
  - Vomiting [None]
  - Viral infection [None]
